FAERS Safety Report 10466692 (Version 1)
Quarter: 2014Q3

REPORT INFORMATION
  Report Type: Spontaneous
  Country: US (occurrence: None)
  Receive Date: 20140919
  Receipt Date: 20140919
  Transmission Date: 20150326
  Serious: No
  Sender: FDA-Public Use
  Company Number: None

PATIENT
  Age: 19 Year
  Sex: Female
  Weight: 83.92 kg

DRUGS (1)
  1. IMPLANON [Suspect]
     Active Substance: ETONOGESTREL
     Indication: CONTRACEPTION
     Dosage: 3 YEARS INSERTED UNDER FAT LAYER IN LEFT ARM
     Dates: start: 20101105, end: 20140917

REACTIONS (2)
  - Device dislocation [None]
  - Anxiety [None]

NARRATIVE: CASE EVENT DATE: 20101105
